FAERS Safety Report 4647947-9 (Version None)
Quarter: 2005Q2

REPORT INFORMATION
  Report Type: 
  Country: None (occurrence: None)
  Receive Date: 20050428
  Receipt Date: 20050419
  Transmission Date: 20051028
  Serious: Yes (Hospitalization)
  Sender: FDA-Public Use
  Company Number: GB-ABBOTT-05P-167-0298215-00

PATIENT
  Sex: Male
  Weight: 90 kg

DRUGS (4)
  1. HUMIRA [Suspect]
     Indication: RHEUMATOID ARTHRITIS
     Route: 058
     Dates: start: 20031222
  2. NAPROXEN [Concomitant]
     Indication: DRUG USE FOR UNKNOWN INDICATION
  3. ACETAMINOPHEN W/ PROPOXYPHENE HCL [Concomitant]
     Indication: DRUG USE FOR UNKNOWN INDICATION
  4. AMITRIPTYLINE HCL TAB [Concomitant]
     Indication: DRUG USE FOR UNKNOWN INDICATION

REACTIONS (1)
  - INGUINAL HERNIA [None]
